FAERS Safety Report 15769114 (Version 3)
Quarter: 2019Q1

REPORT INFORMATION
  Report Type: Spontaneous
  Country: CZ (occurrence: CZ)
  Receive Date: 20181228
  Receipt Date: 20190209
  Transmission Date: 20190417
  Serious: Yes (Death, Other)
  Sender: FDA-Public Use
  Company Number: CZ-ROCHE-2235793

PATIENT
  Age: 76 Year
  Sex: Male

DRUGS (2)
  1. IRINOTECAN [Suspect]
     Active Substance: IRINOTECAN
     Indication: METASTASES TO LUNG
     Dosage: UNK
     Route: 042
     Dates: start: 201211
  2. CAPECITABINE. [Suspect]
     Active Substance: CAPECITABINE
     Indication: METASTASES TO LUNG
     Dosage: UNK
     Route: 065
     Dates: start: 201211

REACTIONS (2)
  - Liver disorder [Unknown]
  - Computerised tomogram abnormal [Recovered/Resolved]

NARRATIVE: CASE EVENT DATE: 201211
